FAERS Safety Report 8558713-6 (Version None)
Quarter: 2012Q3

REPORT INFORMATION
  Report Type: 
  Country: None (occurrence: None)
  Receive Date: 20120801
  Receipt Date: 20120725
  Transmission Date: 20120928
  Serious: Yes (Other)
  Sender: FDA-Public Use
  Company Number: US-UCBSA-062671

PATIENT
  Sex: Male

DRUGS (1)
  1. CIMZIA [Suspect]
     Dates: start: 20110727, end: 20120101

REACTIONS (3)
  - SKIN EXFOLIATION [None]
  - RASH PRURITIC [None]
  - ERYTHEMA [None]
